FAERS Safety Report 18819768 (Version 1)
Quarter: 2021Q1

REPORT INFORMATION
  Report Type: Report from Study
  Country: US (occurrence: US)
  Receive Date: 20210202
  Receipt Date: 20210202
  Transmission Date: 20210419
  Serious: No
  Sender: FDA-Public Use
  Company Number: NVSC2021US017907

PATIENT
  Sex: Female

DRUGS (1)
  1. COSENTYX [Suspect]
     Active Substance: SECUKINUMAB
     Indication: PSORIATIC ARTHROPATHY
     Dosage: 150 MG, ONCE EVERY 4 WEEK
     Route: 058
     Dates: start: 202011, end: 20210114

REACTIONS (6)
  - Weight decreased [Recovered/Resolved]
  - Therapeutic product effect decreased [Not Recovered/Not Resolved]
  - Condition aggravated [Not Recovered/Not Resolved]
  - Candida infection [Recovering/Resolving]
  - Decreased appetite [Recovered/Resolved]
  - Pharyngeal swelling [Recovered/Resolved]
